FAERS Safety Report 4987419-5 (Version None)
Quarter: 2006Q2

REPORT INFORMATION
  Report Type: 
  Country: None (occurrence: None)
  Receive Date: 20060501
  Receipt Date: 20060425
  Transmission Date: 20061013
  Serious: Yes (Life-Threatening)
  Sender: FDA-Public Use
  Company Number: 2006AP01962

PATIENT
  Age: 8 Month
  Sex: Female

DRUGS (3)
  1. XYLOCAINE [Suspect]
     Indication: LOCAL ANAESTHESIA
     Route: 065
     Dates: start: 20060422, end: 20060422
  2. XYLOCAINE [Suspect]
     Indication: EXANTHEMA SUBITUM
     Route: 065
     Dates: start: 20060422, end: 20060422
  3. GLYCERIN [Concomitant]
     Route: 051
     Dates: start: 20060422, end: 20060422

REACTIONS (1)
  - SHOCK [None]
